FAERS Safety Report 11524681 (Version 1)
Quarter: 2015Q3

REPORT INFORMATION
  Report Type: Spontaneous
  Country: ES (occurrence: ES)
  Receive Date: 20150918
  Receipt Date: 20150918
  Transmission Date: 20151125
  Serious: Yes (Other)
  Sender: FDA-Public Use
  Company Number: ES-BAYER-2015-423805

PATIENT
  Age: 67 Year
  Sex: Female

DRUGS (9)
  1. ATORVASTATIN [Concomitant]
     Active Substance: ATORVASTATIN
  2. NAPROXEN. [Concomitant]
     Active Substance: NAPROXEN
  3. TENORMIN [Concomitant]
     Active Substance: ATENOLOL
     Dosage: UNK
  4. ESOMEPRAZOLE W/NAPROXEN [Concomitant]
     Active Substance: ESOMEPRAZOLE MAGNESIUM\NAPROXEN
  5. ULTRAVIST [Suspect]
     Active Substance: IOPROMIDE
     Indication: RENAL SCAN
     Dosage: 120 ML, 3ML/S
     Dates: start: 20150912, end: 20150912
  6. COLPOTROFIN [Concomitant]
  7. HESPERCORBIN [Concomitant]
  8. PANTOPRAZOLE [Concomitant]
     Active Substance: PANTOPRAZOLE SODIUM
  9. IBUPROFEN ARGININE [Concomitant]

REACTIONS (10)
  - Rash generalised [None]
  - Sneezing [None]
  - Cough [None]
  - Laryngeal oedema [None]
  - Nasal congestion [None]
  - Flushing [None]
  - Aphonia [None]
  - Erythema [None]
  - Urticaria [None]
  - Oedema peripheral [None]

NARRATIVE: CASE EVENT DATE: 20150912
